FAERS Safety Report 5320861-1 (Version None)
Quarter: 2007Q2

REPORT INFORMATION
  Report Type: 
  Country: None (occurrence: None)
  Receive Date: 20070504
  Receipt Date: 20070424
  Transmission Date: 20071010
  Serious: Yes (Life-Threatening, Hospitalization, Other)
  Sender: FDA-Public Use
  Company Number: VER_00056_2007

PATIENT
  Age: 47 Year
  Sex: Female

DRUGS (5)
  1. EPINEPHRINE [Suspect]
     Indication: ANAPHYLACTIC SHOCK
     Dosage: 0.1 MG, THREE TIMES IN ONE DAY, INTRAVENOUS BOLUS
     Route: 040
  2. ACEBUTOLOL [Suspect]
     Indication: HYPERTENSION
     Dosage: (400 MG)
  3. PREDNISOLONE [Concomitant]
  4. AMOXICILLIN [Concomitant]
  5. PRISTINAMYCIN [Concomitant]

REACTIONS (7)
  - BLOOD PRESSURE IMMEASURABLE [None]
  - BRADYCARDIA [None]
  - DRUG INTERACTION [None]
  - GENERALISED ERYTHEMA [None]
  - NAUSEA [None]
  - PALLOR [None]
  - PARADOXICAL DRUG REACTION [None]
